FAERS Safety Report 7029733-8 (Version None)
Quarter: 2010Q4

REPORT INFORMATION
  Report Type: 
  Country: None (occurrence: None)
  Receive Date: 20101005
  Receipt Date: 20101005
  Transmission Date: 20110411
  Serious: Yes (Life-Threatening)
  Sender: FDA-Public Use
  Company Number: None

PATIENT
  Age: 28 Year
  Sex: Female
  Weight: 63.5036 kg

DRUGS (1)
  1. HUMIRA [Suspect]
     Indication: CROHN'S DISEASE
     Dosage: 40 MG/0.8 ML EVERY OTHER WEEK SQ
     Route: 058
     Dates: start: 20100621, end: 20101001

REACTIONS (3)
  - PNEUMOMEDIASTINUM [None]
  - TACHYCARDIA [None]
  - TREMOR [None]
